FAERS Safety Report 6596951-2 (Version None)
Quarter: 2010Q1

REPORT INFORMATION
  Report Type: 
  Country: None (occurrence: None)
  Receive Date: 20100223
  Receipt Date: 20100209
  Transmission Date: 20100710
  Serious: Yes (Other)
  Sender: FDA-Public Use
  Company Number: NZ-MYLANLABS-2010S1001361

PATIENT
  Sex: Male

DRUGS (1)
  1. FLUTAMIN [Suspect]
     Indication: PROSTATE CANCER
     Route: 048

REACTIONS (1)
  - VISION BLURRED [None]
